FAERS Safety Report 6726951 (Version 2)
Quarter: 2020Q3

REPORT INFORMATION
  Report Type: Report from Study
  Country: US (occurrence: US)
  Receive Date: 20080814
  Receipt Date: 20081023
  Transmission Date: 20201104
  Serious: Yes (Hospitalization)
  Sender: FDA-Public Use
  Company Number: US-ROCHE-579884

PATIENT
  Age: 83 Year
  Sex: Female
  Weight: 72.6 kg

DRUGS (13)
  1. LIPITOR [Concomitant]
     Active Substance: ATORVASTATIN CALCIUM
  2. ACTOS [Concomitant]
     Active Substance: PIOGLITAZONE HYDROCHLORIDE
  3. PREVACID [Concomitant]
     Active Substance: LANSOPRAZOLE
  4. ATACAND [Concomitant]
     Active Substance: CANDESARTAN CILEXETIL
  5. POTASSIUM [Concomitant]
     Active Substance: POTASSIUM
  6. EXELON [Concomitant]
     Active Substance: RIVASTIGMINE TARTRATE
     Dosage: DRUG REPORTED: EXELON PATCHES
  7. LEXAPRO [Concomitant]
     Active Substance: ESCITALOPRAM OXALATE
  8. ASPIRIN. [Concomitant]
     Active Substance: ASPIRIN
     Dosage: DRUG REPORTED: BABY ASPIRIN
  9. ATENOLOL. [Concomitant]
     Active Substance: ATENOLOL
  10. GLIPIZIDE. [Concomitant]
     Active Substance: GLIPIZIDE
  11. FUROSEMIDE. [Concomitant]
     Active Substance: FUROSEMIDE
  12. TYLENOL [Concomitant]
     Active Substance: ACETAMINOPHEN
     Dosage: DRUG REPORTED: EXTRA STRENGTH TYLENOL
  13. IBANDRONIC ACID. [Suspect]
     Active Substance: IBANDRONIC ACID
     Indication: OSTEOPOROSIS
     Route: 042
     Dates: start: 200802

REACTIONS (2)
  - Fall [None]
  - Hip fracture [Recovered/Resolved]

NARRATIVE: CASE EVENT DATE: 20080501
